FAERS Safety Report 8522057-9 (Version None)
Quarter: 2012Q3

REPORT INFORMATION
  Report Type: 
  Country: None (occurrence: None)
  Receive Date: 20120719
  Receipt Date: 20120713
  Transmission Date: 20120928
  Serious: Yes (Other)
  Sender: FDA-Public Use
  Company Number: PHHY2012BR060307

PATIENT
  Age: 39 Year
  Sex: Female

DRUGS (3)
  1. PREDNISONE [Concomitant]
     Indication: HEART TRANSPLANT
     Dates: end: 20110301
  2. MYCOPHENOLATE MOFETIL [Suspect]
     Indication: HEART TRANSPLANT
     Dosage: 3 G, DAILY
  3. CYCLOSPORINE [Suspect]
     Indication: HEART TRANSPLANT

REACTIONS (9)
  - CONVULSION [None]
  - ATRIAL FIBRILLATION [None]
  - MEMORY IMPAIRMENT [None]
  - IMMUNOSUPPRESSANT DRUG LEVEL INCREASED [None]
  - HEART TRANSPLANT REJECTION [None]
  - DYSARTHRIA [None]
  - ANAEMIA [None]
  - AMERICAN TRYPANOSOMIASIS [None]
  - HEMIPLEGIA [None]
